FAERS Safety Report 4790955-8 (Version None)
Quarter: 2005Q4

REPORT INFORMATION
  Report Type: 
  Country: None (occurrence: None)
  Receive Date: 20051005
  Receipt Date: 20051005
  Transmission Date: 20060501
  Serious: No
  Sender: FDA-Public Use
  Company Number: None

PATIENT
  Age: 38 Year
  Sex: Male

DRUGS (1)
  1. ABACAVIR [Suspect]
     Dates: start: 20050901, end: 20050911

REACTIONS (2)
  - CHILLS [None]
  - PYREXIA [None]
